FAERS Safety Report 7312287-6 (Version None)
Quarter: 2011Q1

REPORT INFORMATION
  Report Type: 
  Country: None (occurrence: None)
  Receive Date: 20110224
  Receipt Date: 20110217
  Transmission Date: 20110831
  Serious: Yes (Hospitalization)
  Sender: FDA-Public Use
  Company Number: B0700036A

PATIENT
  Sex: Male

DRUGS (4)
  1. SEROXAT [Suspect]
     Indication: DEPRESSION
     Dosage: 40MG PER DAY
     Route: 048
  2. SIMVASTATIN [Concomitant]
  3. TROMBYL [Concomitant]
  4. PERSANTIN [Concomitant]

REACTIONS (5)
  - DIZZINESS [None]
  - VERTIGO [None]
  - ARTERIAL STENOSIS [None]
  - GAIT DISTURBANCE [None]
  - SINUS BRADYCARDIA [None]
